FAERS Safety Report 5627365-7 (Version None)
Quarter: 2008Q1

REPORT INFORMATION
  Report Type: 
  Country: None (occurrence: None)
  Receive Date: 20080215
  Receipt Date: 20080206
  Transmission Date: 20080703
  Serious: Yes (Hospitalization, Other)
  Sender: FDA-Public Use
  Company Number: DE-BAYER-200811807GPV

PATIENT
  Age: 40 Year
  Sex: Male
  Weight: 85 kg

DRUGS (1)
  1. MAGNEVIST [Suspect]
     Indication: DIAGNOSTIC PROCEDURE
     Dosage: AS USED: 15 ML
     Route: 065
     Dates: start: 20080123, end: 20080123

REACTIONS (6)
  - CARDIOVASCULAR DISORDER [None]
  - COLD SWEAT [None]
  - DYSPNOEA [None]
  - PARAESTHESIA [None]
  - RASH GENERALISED [None]
  - URTICARIA [None]
